FAERS Safety Report 7558941-2 (Version None)
Quarter: 2011Q2

REPORT INFORMATION
  Report Type: 
  Country: None (occurrence: None)
  Receive Date: 20110621
  Receipt Date: 20110610
  Transmission Date: 20111010
  Serious: Yes (Other)
  Sender: FDA-Public Use
  Company Number: GB-ASTELLAS-2011EU003215

PATIENT
  Sex: Female
  Weight: 67 kg

DRUGS (3)
  1. LEVOTHYROXINE SODIUM [Concomitant]
     Indication: HYPOTHYROIDISM
     Dosage: 50 MG, UID/QD
     Route: 048
     Dates: start: 20070112
  2. VESICARE [Suspect]
     Indication: URGE INCONTINENCE
     Dosage: 5 MG, UID/QD
     Route: 048
     Dates: start: 20110308, end: 20110322
  3. LANSOPRAZOLE [Concomitant]
     Indication: GASTROOESOPHAGEAL REFLUX DISEASE
     Dosage: 15 MG, UID/QD
     Route: 048
     Dates: start: 20070116

REACTIONS (1)
  - GASTROOESOPHAGEAL REFLUX DISEASE [None]
